FAERS Safety Report 6059050-4 (Version None)
Quarter: 2009Q1

REPORT INFORMATION
  Report Type: 
  Country: None (occurrence: None)
  Receive Date: 20090130
  Receipt Date: 20090119
  Transmission Date: 20090719
  Serious: Yes (Hospitalization)
  Sender: FDA-Public Use
  Company Number: B0554843A

PATIENT
  Age: 26 Year
  Sex: Male

DRUGS (4)
  1. AUGMENTIN '125' [Suspect]
     Indication: PERITONITIS
     Dosage: 2G THREE TIMES PER DAY
     Route: 042
     Dates: start: 20081217, end: 20081220
  2. ACUPAN [Suspect]
     Indication: PERITONITIS
     Dosage: 4UNIT PER DAY
     Route: 042
     Dates: start: 20081217, end: 20081218
  3. DROLEPTAN [Suspect]
     Indication: INTESTINAL OPERATION
     Dosage: 1UNIT PER DAY
     Route: 042
     Dates: start: 20081217, end: 20081218
  4. NAROPEINE [Suspect]
     Indication: PERITONITIS
     Dosage: 30ML PER DAY
     Route: 033
     Dates: start: 20081217, end: 20081217

REACTIONS (1)
  - MUSCLE CONTRACTURE [None]
